FAERS Safety Report 4910111-X (Version None)
Quarter: 2006Q1

REPORT INFORMATION
  Report Type: 
  Country: None (occurrence: None)
  Receive Date: 20060209
  Receipt Date: 20060123
  Transmission Date: 20060701
  Serious: Yes (Hospitalization, Other)
  Sender: FDA-Public Use
  Company Number: US200512003574

PATIENT
  Age: 61 Year
  Sex: Female

DRUGS (2)
  1. HUMULIN R [Suspect]
     Indication: DIABETES MELLITUS
     Dosage: SEE IMAGE
     Dates: start: 19890101
  2. HUMULIN L [Suspect]
     Indication: DIABETES MELLITUS
     Dosage: SEE IMAGE
     Dates: start: 19890101

REACTIONS (5)
  - BLINDNESS UNILATERAL [None]
  - BLOOD GLUCOSE INCREASED [None]
  - HYPERTENSION [None]
  - RENAL FAILURE [None]
  - RENAL TRANSPLANT [None]
